FAERS Safety Report 7532540-0 (Version None)
Quarter: 2011Q2

REPORT INFORMATION
  Report Type: 
  Country: None (occurrence: None)
  Receive Date: 20110608
  Receipt Date: 20110530
  Transmission Date: 20111010
  Serious: Yes (Life-Threatening, Hospitalization, Other)
  Sender: FDA-Public Use
  Company Number: PT-AMGEN-PRTSP2011020439

PATIENT
  Age: 31 Year
  Sex: Female
  Weight: 67 kg

DRUGS (4)
  1. IVIGLOB-EX [Concomitant]
  2. PREDNISOLONE [Concomitant]
     Dosage: 5 MG, QOD
  3. NPLATE [Suspect]
     Indication: IDIOPATHIC THROMBOCYTOPENIC PURPURA
     Dosage: UNK
     Dates: start: 20100512, end: 20100628
  4. NPLATE [Suspect]
     Dosage: 5 A?G/KG, QWK
     Dates: start: 20101220, end: 20110401

REACTIONS (8)
  - HAEMATURIA [None]
  - GINGIVAL BLEEDING [None]
  - PRODUCTIVE COUGH [None]
  - PLATELET AGGREGATION [None]
  - VIRAL INFECTION [None]
  - THERAPEUTIC RESPONSE DECREASED [None]
  - COUGH [None]
  - LYMPHADENOPATHY [None]
